FAERS Safety Report 7590340-X (Version None)
Quarter: 2011Q3

REPORT INFORMATION
  Report Type: 
  Country: None (occurrence: None)
  Receive Date: 20110705
  Receipt Date: 20110616
  Transmission Date: 20111222
  Serious: No
  Sender: FDA-Public Use
  Company Number: US-B.I. PHARMACEUTICALS,INC./RIDGEFIELD-2011-BP-08162BP

PATIENT
  Sex: Female
  Weight: 104.33 kg

DRUGS (9)
  1. PRADAXA [Suspect]
     Indication: DEEP VEIN THROMBOSIS
  2. 02 [Concomitant]
  3. POTASSIUM [Concomitant]
     Dosage: 20 MG
     Dates: start: 20090403
  4. MULTI-VITAMIN [Concomitant]
  5. PRADAXA [Suspect]
     Indication: ANTICOAGULANT THERAPY
     Dosage: 300 MG
     Route: 048
     Dates: start: 20110311, end: 20110314
  6. RAMIPRIL [Concomitant]
     Dosage: 2.5 MG
     Dates: start: 20100622
  7. NYSTATIN TOPICAL PWDR [Concomitant]
     Dates: start: 20101112
  8. MAGNESIUM [Concomitant]
  9. VITAMIN D [Concomitant]
     Dates: start: 20100810

REACTIONS (4)
  - URINARY TRACT INFECTION [None]
  - HAEMATURIA [None]
  - OROPHARYNGEAL PAIN [None]
  - BLOOD URINE PRESENT [None]
